FAERS Safety Report 20735562 (Version 1)
Quarter: 2022Q2

REPORT INFORMATION
  Report Type: Spontaneous
  Country: US (occurrence: US)
  Receive Date: 20220421
  Receipt Date: 20220421
  Transmission Date: 20220721
  Serious: Yes (Hospitalization, Other)
  Sender: FDA-Public Use
  Company Number: US-GLAXOSMITHKLINE-US2022GSK066152

PATIENT
  Age: 24 Year
  Sex: Female

DRUGS (1)
  1. LAMOTRIGINE [Suspect]
     Active Substance: LAMOTRIGINE
     Indication: Affective disorder
     Dosage: UNK

REACTIONS (9)
  - Stevens-Johnson syndrome [Recovering/Resolving]
  - Rash vesicular [Recovering/Resolving]
  - Rash erythematous [Recovering/Resolving]
  - Pemphigoid [Recovering/Resolving]
  - Skin exfoliation [Recovering/Resolving]
  - Rash papular [Recovering/Resolving]
  - Erythema [Unknown]
  - Genital labial adhesions [Recovered/Resolved]
  - Vulvovaginal pruritus [Unknown]
